FAERS Safety Report 5701504-1 (Version None)
Quarter: 2008Q2

REPORT INFORMATION
  Report Type: 
  Country: None (occurrence: None)
  Receive Date: 20080408
  Receipt Date: 20080325
  Transmission Date: 20081010
  Serious: Yes (Death)
  Sender: FDA-Public Use
  Company Number: US023096

PATIENT
  Age: 35 Year
  Sex: Female
  Weight: 60.78 kg

DRUGS (13)
  1. PROVIGIL [Suspect]
     Dosage: 200 MG ORAL
     Route: 048
  2. OPANA ER [Suspect]
     Indication: PAIN
     Dosage: 20 MG BID ORAL
     Route: 048
     Dates: start: 20070407, end: 20070508
  3. OPANA ER [Suspect]
     Indication: PAIN
     Dosage: 60 MG 40MG QAM; 20MG QPM ORAL
     Route: 048
     Dates: start: 20070509
  4. OPANA [Suspect]
     Indication: BREAKTHROUGH PAIN
     Dosage: 5 MG Q12HR ORAL
     Route: 048
     Dates: start: 20070407, end: 20070508
  5. OPANA [Suspect]
     Indication: BREAKTHROUGH PAIN
     Dosage: 5 MG TID ORAL
     Route: 048
     Dates: start: 20070509
  6. DURAGESIC-100 [Suspect]
     Indication: PAIN
     Dosage: 100 UG Q72HR TRANSDERMAL
     Route: 062
     Dates: start: 20070401, end: 20070501
  7. VICODIN ES [Suspect]
     Indication: PAIN
     Dosage: ONE TABLET QID ORAL
     Route: 048
  8. AMITRIPTYLINE HCL [Suspect]
     Dosage: 300 MG QHS ORAL
     Route: 048
  9. ZOLOFT [Suspect]
     Dosage: 100 MG QD ORAL
     Route: 048
  10. LEVOXYL [Suspect]
     Dosage: TWO TABLETS QD ORAL
     Route: 048
  11. LUNESTA [Suspect]
     Dosage: 3 MG QHS ORAL
     Route: 048
  12. KLONOPIN [Suspect]
     Dosage: 2 MG TID ORAL
     Route: 048
  13. ARAVA [Suspect]
     Indication: RHEUMATOID ARTHRITIS
     Dosage: 20 MG QD ORAL
     Route: 048
     Dates: end: 20070401

REACTIONS (3)
  - DRUG EFFECT DECREASED [None]
  - DRUG TOXICITY [None]
  - TREATMENT NONCOMPLIANCE [None]
